FAERS Safety Report 19979976 (Version 1)
Quarter: 2021Q4

REPORT INFORMATION
  Report Type: Spontaneous
  Country: CN (occurrence: CN)
  Receive Date: 20211021
  Receipt Date: 20211021
  Transmission Date: 20220303
  Serious: Yes (Hospitalization, Disabling)
  Sender: FDA-Public Use
  Company Number: CN-LUPIN PHARMACEUTICALS INC.-2021-20086

PATIENT
  Age: 80 Year
  Sex: Male

DRUGS (9)
  1. VANCOMYCIN [Suspect]
     Active Substance: VANCOMYCIN
     Indication: Klebsiella infection
     Dosage: UNK (INJECTION)
  2. VANCOMYCIN [Suspect]
     Active Substance: VANCOMYCIN
     Indication: Endophthalmitis
  3. CEFOPERAZONE [Suspect]
     Active Substance: CEFOPERAZONE
     Indication: Klebsiella infection
     Dosage: UNK
  4. CEFOPERAZONE [Suspect]
     Active Substance: CEFOPERAZONE
     Indication: Endophthalmitis
  5. BIAPENEM [Concomitant]
     Active Substance: BIAPENEM
     Indication: Klebsiella infection
     Dosage: UNK
     Route: 042
  6. BIAPENEM [Concomitant]
     Active Substance: BIAPENEM
     Indication: Liver abscess
  7. Morinidazole [Concomitant]
     Indication: Klebsiella infection
     Dosage: UNK
     Route: 042
  8. Morinidazole [Concomitant]
     Indication: Liver abscess
  9. PHOSPHOLIPID [Concomitant]
     Active Substance: PHOSPHOLIPID
     Indication: Hepatobiliary disorder prophylaxis
     Dosage: UNK
     Route: 065

REACTIONS (1)
  - Drug ineffective [Unknown]
